FAERS Safety Report 11166805 (Version 1)
Quarter: 2015Q2

REPORT INFORMATION
  Report Type: Spontaneous
  Country: FR (occurrence: None)
  Receive Date: 20150603
  Receipt Date: 20150603
  Transmission Date: 20150821
  Serious: Yes (Death, Life-Threatening, Hospitalization)
  Sender: FDA-Public Use
  Company Number: 2007DEPFR00474

PATIENT
  Age: 49 Year
  Sex: Female

DRUGS (7)
  1. DAFALGAN [Concomitant]
     Active Substance: ACETAMINOPHEN
  2. DEPOCYT [Suspect]
     Active Substance: CYTARABINE
     Indication: MENINGEAL NEOPLASM
     Route: 037
     Dates: start: 20070601, end: 20070601
  3. SOLUPRED (PREDNISOLONE METASULFOBENZOLATE SODIUM) [Concomitant]
  4. LEXOMIL (BROMAZEPAM) [Concomitant]
     Active Substance: BROMAZEPAM
  5. DIFFU K (POTASSIUM CHLORIDE) [Concomitant]
  6. SOLU-MEDROL [Concomitant]
     Active Substance: METHYLPREDNISOLONE SODIUM SUCCINATE
  7. OMEPRAZOLE. [Concomitant]
     Active Substance: OMEPRAZOLE

REACTIONS (1)
  - Arachnoiditis [None]

NARRATIVE: CASE EVENT DATE: 20070601
